FAERS Safety Report 16557118 (Version 1)
Quarter: 2019Q3

REPORT INFORMATION
  Report Type: Spontaneous
  Country: US (occurrence: US)
  Receive Date: 20190711
  Receipt Date: 20190711
  Transmission Date: 20191004
  Serious: Yes (Hospitalization, Other)
  Sender: FDA-Public Use
  Company Number: US-AUROBINDO-AUR-APL-2019-038421

PATIENT

DRUGS (10)
  1. LIDOCAINE INJECTION [Suspect]
     Active Substance: LIDOCAINE
     Indication: CANCER PAIN
     Dosage: UNK,RAPID AND CONTINUOUS LIDOCAINE INFUSIONS
     Route: 065
  2. KETAMINE [Concomitant]
     Active Substance: KETAMINE
     Indication: CANCER PAIN
     Dosage: UNK
     Route: 065
  3. METHADONE [Concomitant]
     Active Substance: METHADONE HYDROCHLORIDE
     Indication: CANCER PAIN
     Dosage: UNK
     Route: 065
  4. MORPHINE [Concomitant]
     Active Substance: MORPHINE
     Dosage: UNK,INCREASES IN PCA MORPHINE
     Route: 065
  5. HYDROMORPHONE [Concomitant]
     Active Substance: HYDROMORPHONE
     Indication: CANCER PAIN
     Dosage: UNK,BASAL?BOLUS PCA
     Route: 065
  6. DEXAMETHASONE. [Concomitant]
     Active Substance: DEXAMETHASONE
     Indication: CANCER PAIN
     Dosage: UNK
     Route: 065
  7. MORPHINE [Concomitant]
     Active Substance: MORPHINE
     Indication: CANCER PAIN
     Dosage: UNK,BASAL?BOLUS INFUSION
     Route: 065
  8. KETOROLAC [Concomitant]
     Active Substance: KETOROLAC TROMETHAMINE
     Indication: CANCER PAIN
     Dosage: UNK,AS NEEDED
     Route: 065
  9. DEXAMETHASONE. [Concomitant]
     Active Substance: DEXAMETHASONE
     Dosage: UNK,MAXIMIZING DEXAMETHASONE
     Route: 065
  10. METHADONE [Concomitant]
     Active Substance: METHADONE HYDROCHLORIDE
     Dosage: UNK,MAXIMIZING METHADONE
     Route: 065

REACTIONS (3)
  - Delirium [Recovered/Resolved]
  - Drug ineffective [Not Recovered/Not Resolved]
  - Anxiety [Unknown]
